FAERS Safety Report 24139115 (Version 4)
Quarter: 2024Q4

REPORT INFORMATION
  Report Type: Report from Study
  Country: US (occurrence: US)
  Receive Date: 20240726
  Receipt Date: 20241018
  Transmission Date: 20250114
  Serious: No
  Sender: ACADIA PHARMACEUTICALS
  Company Number: US-ACADIA PHARMACEUTICALS INC.-ACA-2024-TRF-003229

PATIENT
  Age: 14 Year
  Sex: Female

DRUGS (4)
  1. DAYBUE [Suspect]
     Active Substance: TROFINETIDE
     Indication: Rett syndrome
     Dosage: 50 MILLILITER, BID
     Route: 048
  2. DAYBUE [Suspect]
     Active Substance: TROFINETIDE
     Dosage: AM DAYBUE DOSE WAS INCREASED TO 50ML ON FRIDAY AND PM DOSE HAS REMAINED AT 47ML
     Route: 048
     Dates: start: 20240830
  3. DAYBUE [Suspect]
     Active Substance: TROFINETIDE
     Dosage: AM DOSE WAS DECREASED TO 49ML AND THE PM DOSE HAS REMAINED AT 47ML
     Route: 048
  4. DAYBUE [Suspect]
     Active Substance: TROFINETIDE
     Dosage: 50 MILLILITER, BID
     Route: 048

REACTIONS (8)
  - Constipation [Recovering/Resolving]
  - Enema administration [Not Recovered/Not Resolved]
  - Insomnia [Not Recovered/Not Resolved]
  - Underdose [Not Recovered/Not Resolved]
  - Menstrual clots [Unknown]
  - Irritability [Not Recovered/Not Resolved]
  - Mood altered [Not Recovered/Not Resolved]
  - Diarrhoea [Not Recovered/Not Resolved]

NARRATIVE: CASE EVENT DATE: 20240905
